FAERS Safety Report 7339822-6 (Version None)
Quarter: 2011Q1

REPORT INFORMATION
  Report Type: 
  Country: None (occurrence: None)
  Receive Date: 20110304
  Receipt Date: 20110304
  Transmission Date: 20110831
  Serious: Yes (Other)
  Sender: FDA-Public Use
  Company Number: None

PATIENT
  Age: 26 Year
  Sex: Male
  Weight: 72.5755 kg

DRUGS (2)
  1. CORTIZONE SHOTS [Concomitant]
  2. LEVAQUIN [Suspect]
     Indication: PROSTATITIS
     Dosage: 500 MG TWICE A DAY PO
     Route: 048
     Dates: start: 20100122, end: 20100205

REACTIONS (1)
  - TENDONITIS [None]
